FAERS Safety Report 25465145 (Version 1)
Quarter: 2025Q2

REPORT INFORMATION
  Report Type: Report from Study
  Country: CO (occurrence: CO)
  Receive Date: 20250622
  Receipt Date: 20250622
  Transmission Date: 20250716
  Serious: Yes (Hospitalization)
  Sender: JOHNSON AND JOHNSON
  Company Number: CO-JNJFOC-20250511500

PATIENT
  Age: 36 Year
  Sex: Male
  Weight: 68 kg

DRUGS (7)
  1. INVEGA SUSTENNA [Suspect]
     Active Substance: PALIPERIDONE PALMITATE
     Indication: Schizophrenia
     Dosage: LAST DATE OF APPLICATION WAS ON 23-APR-2025
     Route: 030
     Dates: start: 20240227
  2. INVEGA SUSTENNA [Suspect]
     Active Substance: PALIPERIDONE PALMITATE
  3. INVEGA SUSTENNA [Suspect]
     Active Substance: PALIPERIDONE PALMITATE
  4. QUETIAPINE [Concomitant]
     Active Substance: QUETIAPINE
     Indication: Product used for unknown indication
  5. FOLIC ACID [Concomitant]
     Active Substance: FOLIC ACID
     Indication: Product used for unknown indication
  6. ERYTHROPOIETIN [Concomitant]
     Active Substance: ERYTHROPOIETIN
     Indication: Product used for unknown indication
  7. ALIZAPRIDE [Concomitant]
     Active Substance: ALIZAPRIDE
     Indication: Product used for unknown indication

REACTIONS (3)
  - Pyrexia [Recovered/Resolved]
  - Abdominal pain upper [Recovered/Resolved]
  - Haemoglobin decreased [Recovered/Resolved]

NARRATIVE: CASE EVENT DATE: 20250424
